FAERS Safety Report 4681381-0 (Version None)
Quarter: 2005Q2

REPORT INFORMATION
  Report Type: 
  Country: None (occurrence: None)
  Receive Date: 20050603
  Receipt Date: 20021218
  Transmission Date: 20051028
  Serious: Yes (Life-Threatening, Hospitalization, Other)
  Sender: FDA-Public Use
  Company Number: US-BOEHRINGER INGELHEIM PHARMACEUTICALS, INC.-2002-BP-06234BP

PATIENT
  Age: 32 Year
  Sex: Female
  Weight: 74.1 kg

DRUGS (10)
  1. VIRAMUNE [Suspect]
     Route: 048
     Dates: start: 20021008
  2. VIRAMUNE [Suspect]
     Route: 048
     Dates: start: 20020925, end: 20021008
  3. COMBIVIR [Suspect]
     Route: 048
     Dates: start: 20020925, end: 20021107
  4. 3TC [Concomitant]
     Route: 048
     Dates: start: 20021108
  5. D4T [Concomitant]
     Route: 048
     Dates: start: 20021108
  6. PRENATAL VITAMINS [Concomitant]
     Dates: start: 20020715
  7. IRON [Concomitant]
     Dates: start: 20020715
  8. TYLENOL (CAPLET) [Concomitant]
     Dates: start: 20021024
  9. TRAN [Concomitant]
     Dates: start: 20021024
  10. PNV [Concomitant]

REACTIONS (9)
  - ANAEMIA [None]
  - BLOOD PRESSURE INCREASED [None]
  - DECREASED APPETITE [None]
  - DRUG EXPOSURE DURING PREGNANCY [None]
  - FATIGUE [None]
  - HAEMATOCRIT DECREASED [None]
  - HAEMOGLOBIN DECREASED [None]
  - HEADACHE [None]
  - OLIGOHYDRAMNIOS [None]
